FAERS Safety Report 7095806-7 (Version None)
Quarter: 2010Q4

REPORT INFORMATION
  Report Type: 
  Country: None (occurrence: None)
  Receive Date: 20101109
  Receipt Date: 20101109
  Transmission Date: 20110411
  Serious: No
  Sender: FDA-Public Use
  Company Number: None

PATIENT
  Age: 47 Year
  Sex: Male

DRUGS (6)
  1. REVLIMID [Suspect]
     Indication: MULTIPLE MYELOMA
     Dosage: REVLIMID 20MG DAILY X21D /28D ORALLY
     Route: 048
     Dates: start: 20101009, end: 20101029
  2. LISINOPRIL [Concomitant]
  3. K-TAB [Concomitant]
  4. GLIPIZIDE [Concomitant]
  5. OXYCODONE HCL AND ACETAMINOPHEN [Concomitant]
  6. ONDANSETRON [Concomitant]

REACTIONS (6)
  - ARTHRALGIA [None]
  - NEUROPATHY PERIPHERAL [None]
  - PAIN [None]
  - SEPSIS [None]
  - SYNCOPE [None]
  - TYPE 2 DIABETES MELLITUS [None]
